FAERS Safety Report 8759101 (Version 5)
Quarter: 2014Q1

REPORT INFORMATION
  Report Type: Report from Study
  Country: FR (occurrence: FR)
  Receive Date: 20120829
  Receipt Date: 20140328
  Transmission Date: 20141002
  Serious: Yes (Other)
  Sender: FDA-Public Use
  Company Number: PHHY2012FR073883

PATIENT
  Age: 73 Year
  Sex: Female
  Weight: 61 kg

DRUGS (10)
  1. AMN107 [Suspect]
     Indication: CHRONIC MYELOID LEUKAEMIA
     Dosage: 400 MG, DAILY
     Route: 048
     Dates: start: 20120114
  2. AMN107 [Interacting]
     Dosage: 400 MG, QD
     Route: 048
     Dates: start: 20120221, end: 20120730
  3. AMN107 [Interacting]
     Dosage: 200 MG, QD
     Dates: start: 20120823, end: 20121007
  4. AMN107 [Interacting]
     Dosage: 400 MG, QD
     Dates: start: 20121008, end: 20121113
  5. AMN107 [Interacting]
     Dosage: 400 MG, DAILY
     Dates: start: 20121118, end: 20121122
  6. AMN107 [Interacting]
     Dosage: 200 MG, DAILY
     Dates: start: 20121127, end: 20121128
  7. SPIRONOLACTONE+ALTIZIDE SANDOZ [Interacting]
     Indication: HYPERTENSION
     Dosage: 0.5 DF, QD
     Dates: start: 2005, end: 20121129
  8. KARDEGIC [Concomitant]
     Indication: TRANSIENT ISCHAEMIC ATTACK
     Dates: start: 2005
  9. DEXERYL [Concomitant]
  10. ESTROGEN [Concomitant]
     Indication: HORMONE REPLACEMENT THERAPY

REACTIONS (2)
  - Lipase increased [Recovered/Resolved]
  - Alanine aminotransferase increased [Recovered/Resolved]
